FAERS Safety Report 6181186-8 (Version None)
Quarter: 2009Q2

REPORT INFORMATION
  Report Type: 
  Country: None (occurrence: None)
  Receive Date: 20090504
  Receipt Date: 20090422
  Transmission Date: 20091009
  Serious: Yes (Hospitalization)
  Sender: FDA-Public Use
  Company Number: CAP09000052

PATIENT
  Age: 70 Year
  Sex: Female

DRUGS (15)
  1. ACTONEL [Suspect]
     Indication: OSTEOPOROSIS
     Dosage: 35 MG ONCE WEEKLY, ORAL
     Route: 048
     Dates: start: 20070301
  2. INVESTIGATION DRUG () [Suspect]
     Indication: CARDIOVASCULAR EVENT PROPHYLAXIS
     Dosage: 20 MG ONCE DAILY, ORAL
     Route: 048
     Dates: start: 20070522, end: 20081106
  3. ASPIRIN [Concomitant]
  4. IRBESARTAN [Concomitant]
  5. ALTACE [Concomitant]
  6. FIBRATES [Concomitant]
  7. ORAL ANTIDIABETICS [Concomitant]
  8. METFORMIN HCL [Concomitant]
  9. NOVOLIN /00646002/ (INSULIN HUMAN INJECTION, ISOPHANE) [Concomitant]
  10. NOVOLOG [Concomitant]
  11. LEVEMIR [Concomitant]
  12. DILTIAZEM [Concomitant]
  13. VENTOLIN [Concomitant]
  14. RABEPRAZOLE SODIUM [Concomitant]
  15. TUMS /00108001/ (CALCIUM CARBONATE) [Concomitant]

REACTIONS (21)
  - ABDOMINAL DISTENSION [None]
  - ABDOMINAL PAIN [None]
  - ABDOMINAL TENDERNESS [None]
  - ANGINA UNSTABLE [None]
  - BLOOD CREATINE PHOSPHOKINASE INCREASED [None]
  - BLOOD CREATININE INCREASED [None]
  - BLOOD POTASSIUM INCREASED [None]
  - CHEST DISCOMFORT [None]
  - ELECTROCARDIOGRAM ST SEGMENT ABNORMAL [None]
  - EPISTAXIS [None]
  - GASTRITIS [None]
  - GASTROINTESTINAL MUCOSAL DISORDER [None]
  - HAEMOGLOBIN DECREASED [None]
  - HIATUS HERNIA [None]
  - ISCHAEMIA [None]
  - LEFT VENTRICULAR HYPERTROPHY [None]
  - MEAN CELL VOLUME DECREASED [None]
  - MITRAL VALVE INCOMPETENCE [None]
  - SINUS TACHYCARDIA [None]
  - URINARY TRACT INFECTION [None]
  - VOMITING [None]
